FAERS Safety Report 8361345-6 (Version None)
Quarter: 2012Q2

REPORT INFORMATION
  Report Type: 
  Country: None (occurrence: None)
  Receive Date: 20120515
  Receipt Date: 20120511
  Transmission Date: 20120825
  Serious: Yes (Death)
  Sender: FDA-Public Use
  Company Number: DK-ROCHE-1068718

PATIENT
  Sex: Female

DRUGS (3)
  1. FRISIUM [Concomitant]
     Route: 065
     Dates: start: 20040101
  2. LAMOTRIGINE [Concomitant]
     Indication: EPILEPSY
     Dosage: 400 MG
     Route: 065
     Dates: start: 20040101
  3. AVASTIN [Suspect]
     Indication: NEUROFIBROMATOSIS
     Dosage: STYRKE: 25 MG/ML
     Route: 042
     Dates: start: 20100204

REACTIONS (2)
  - INTRACRANIAL ANEURYSM [None]
  - SUBARACHNOID HAEMORRHAGE [None]
